FAERS Safety Report 8407782-2 (Version None)
Quarter: 2012Q2

REPORT INFORMATION
  Report Type: 
  Country: None (occurrence: None)
  Receive Date: 20120604
  Receipt Date: 20120530
  Transmission Date: 20120825
  Serious: Yes (Congenital Anomaly)
  Sender: FDA-Public Use
  Company Number: US-GLAXOSMITHKLINE-A0979877A

PATIENT
  Sex: Female

DRUGS (5)
  1. MULTI-VITAMINS [Concomitant]
  2. KLONOPIN [Concomitant]
     Dates: end: 20041001
  3. INDERAL [Concomitant]
  4. PAROXETINE HCL [Suspect]
     Indication: DEPRESSION
     Dosage: 40MG PER DAY
     Route: 064
  5. ADDERALL 5 [Concomitant]
     Dates: end: 20041101

REACTIONS (3)
  - CARDIAC MURMUR [None]
  - FOETAL EXPOSURE DURING PREGNANCY [None]
  - ASTHMA [None]
